FAERS Safety Report 25869931 (Version 1)
Quarter: 2025Q4

REPORT INFORMATION
  Report Type: Spontaneous
  Country: US (occurrence: US)
  Receive Date: 20251001
  Receipt Date: 20251001
  Transmission Date: 20260118
  Serious: No
  Sender: RECKITT BENCKISER
  Company Number: US-INDIVIOR US-INDV-157276-2024

PATIENT
  Sex: Female
  Weight: 82.086 kg

DRUGS (5)
  1. SUBOXONE [Suspect]
     Active Substance: BUPRENORPHINE HYDROCHLORIDE\NALOXONE HYDROCHLORIDE
     Indication: Drug dependence
     Dosage: 8 MILLIGRAM, BID
     Route: 060
  2. SUBOXONE [Suspect]
     Active Substance: BUPRENORPHINE HYDROCHLORIDE\NALOXONE HYDROCHLORIDE
     Indication: Drug dependence
     Dosage: 8 MILLIGRAM, BID
     Route: 065
  3. SUBOXONE [Suspect]
     Active Substance: BUPRENORPHINE HYDROCHLORIDE\NALOXONE HYDROCHLORIDE
     Indication: Drug dependence
     Dosage: 12 MILLIGRAM, QD
     Route: 065
  4. BUPRENORPHINE\NALOXONE [Suspect]
     Active Substance: BUPRENORPHINE\NALOXONE
     Indication: Drug dependence
     Dosage: 8 MILLIGRAM, QD
     Route: 060
     Dates: start: 2020
  5. BUPRENORPHINE\NALOXONE [Suspect]
     Active Substance: BUPRENORPHINE\NALOXONE
     Dosage: 8 MILLIGRAM, QD (DISSOLVE 1.5 TAB)
     Route: 060
     Dates: start: 2021

REACTIONS (10)
  - Dental caries [Unknown]
  - Tooth erosion [Unknown]
  - Tooth fracture [Unknown]
  - Weight increased [Unknown]
  - Amnesia [Unknown]
  - Drug abuse [Unknown]
  - Inappropriate schedule of product administration [Unknown]
  - Constipation [Unknown]
  - Gingivitis [Unknown]
  - Influenza [Unknown]

NARRATIVE: CASE EVENT DATE: 20240101
